FAERS Safety Report 22299712 (Version 1)
Quarter: 2023Q2

REPORT INFORMATION
  Report Type: Spontaneous
  Country: US (occurrence: US)
  Receive Date: 20230509
  Receipt Date: 20230509
  Transmission Date: 20230721
  Serious: Yes (Hospitalization, Other)
  Sender: FDA-Public Use
  Company Number: US-002147023-NVSC2023US104667

PATIENT
  Age: 34 Year
  Sex: Female

DRUGS (3)
  1. LOSARTAN [Suspect]
     Active Substance: LOSARTAN
     Indication: Product used for unknown indication
     Dosage: 25 MG, SWALLOW 30 TABLETS (REPORTED BY HER MOTHER) A FEW HOURS EARLIER
     Route: 048
  2. AMLODIPINE [Concomitant]
     Active Substance: AMLODIPINE BESYLATE
     Indication: Product used for unknown indication
     Dosage: UNK
     Route: 065
  3. ALBUTEROL [Concomitant]
     Active Substance: ALBUTEROL
     Indication: Product used for unknown indication
     Dosage: AS NEEDED

REACTIONS (5)
  - Pancreatitis acute [Recovering/Resolving]
  - Suicide attempt [Unknown]
  - Intentional overdose [Unknown]
  - Asthma [Unknown]
  - Concomitant disease aggravated [Unknown]
